FAERS Safety Report 4465698-0 (Version None)
Quarter: 2004Q4

REPORT INFORMATION
  Report Type: 
  Country: None (occurrence: None)
  Receive Date: 20041004
  Receipt Date: 20040924
  Transmission Date: 20050328
  Serious: Yes (Other)
  Sender: FDA-Public Use
  Company Number: US-MERCK-0409USA02170

PATIENT
  Age: 61 Year
  Sex: Female

DRUGS (5)
  1. VICODIN [Concomitant]
     Route: 065
  2. COMBIVENT [Concomitant]
     Route: 065
  3. ADVAIR DISKUS 100/50 [Concomitant]
     Route: 065
  4. VIOXX [Suspect]
     Indication: ARTHRALGIA
     Route: 048
     Dates: start: 20040201, end: 20040101
  5. VIOXX [Suspect]
     Route: 048
     Dates: start: 20040101, end: 20040901

REACTIONS (5)
  - BRADYCARDIA [None]
  - DRUG INEFFECTIVE [None]
  - HEART RATE IRREGULAR [None]
  - PRESCRIBED OVERDOSE [None]
  - VENTRICULAR EXTRASYSTOLES [None]
